FAERS Safety Report 20304388 (Version 6)
Quarter: 2022Q1

REPORT INFORMATION
  Report Type: Report from Study
  Country: US (occurrence: US)
  Receive Date: 20220106
  Receipt Date: 20220215
  Transmission Date: 20220423
  Serious: Yes (Other)
  Sender: FDA-Public Use
  Company Number: US-NOVARTISPH-NVSC2022US001518

PATIENT
  Sex: Male

DRUGS (3)
  1. ENTRESTO [Suspect]
     Active Substance: SACUBITRIL\VALSARTAN
     Indication: Product used for unknown indication
     Dosage: 1 DOSAGE FORM, BID
     Route: 048
     Dates: start: 202110
  2. ENTRESTO [Suspect]
     Active Substance: SACUBITRIL\VALSARTAN
     Dosage: 1 DOSAGE FORM, BID
     Route: 048
  3. ENTRESTO [Suspect]
     Active Substance: SACUBITRIL\VALSARTAN
     Dosage: 1 DOSAGE FORM, BID
     Route: 048

REACTIONS (11)
  - Cardiac failure [Unknown]
  - Pulmonary fibrosis [Unknown]
  - Pericardial effusion [Unknown]
  - Concomitant disease aggravated [Unknown]
  - Productive cough [Unknown]
  - Movement disorder [Unknown]
  - Throat clearing [Unknown]
  - Hypertension [Unknown]
  - Decreased appetite [Unknown]
  - Fatigue [Unknown]
  - Cough [Unknown]
